FAERS Safety Report 9414343 (Version 1)
Quarter: 2013Q3

REPORT INFORMATION
  Report Type: Spontaneous
  Country: FR (occurrence: None)
  Receive Date: 20130717
  Receipt Date: 20130717
  Transmission Date: 20140515
  Serious: Yes (Hospitalization)
  Sender: FDA-Public Use
  Company Number: NSR_01186_2013

PATIENT
  Age: 28 Year
  Sex: Female

DRUGS (5)
  1. BACLOFEN [Suspect]
     Indication: ALCOHOLISM
     Dosage: [NOT PRESCRIBED DOSE]
     Route: 048
  2. OXAZEPAM [Suspect]
     Indication: PRODUCT USED FOR UNKNOWN INDICATION
     Dosage: 100 MG 1X, DF
  3. CITALOPRAM [Concomitant]
  4. PRAZEPAM [Suspect]
  5. LORMETAZEPAM [Concomitant]

REACTIONS (13)
  - Drug screen positive [None]
  - Coma [None]
  - Pupillary reflex impaired [None]
  - Hypotonia [None]
  - Areflexia [None]
  - Myoclonus [None]
  - Haemodynamic instability [None]
  - Hypotension [None]
  - Bradycardia [None]
  - Electrocardiogram QT prolonged [None]
  - Pneumonia aspiration [None]
  - Abnormal behaviour [None]
  - Persecutory delusion [None]
